FAERS Safety Report 4801682-2 (Version None)
Quarter: 2005Q4

REPORT INFORMATION
  Report Type: 
  Country: None (occurrence: None)
  Receive Date: 20051018
  Receipt Date: 20051006
  Transmission Date: 20060501
  Serious: Yes (Other)
  Sender: FDA-Public Use
  Company Number: CA-GLAXOSMITHKLINE-A0577579A

PATIENT
  Age: 84 Year
  Sex: Female

DRUGS (4)
  1. ZANTAC [Suspect]
     Indication: ILL-DEFINED DISORDER
     Dosage: 150MG TWICE PER DAY
     Route: 048
     Dates: start: 20051004, end: 20051006
  2. CARBOCAL [Concomitant]
  3. HYDROXYZINE [Concomitant]
  4. NOVO-TEMAZEPAM [Concomitant]

REACTIONS (3)
  - CHEST DISCOMFORT [None]
  - DYSPNOEA [None]
  - NAUSEA [None]
